FAERS Safety Report 14499021 (Version 1)
Quarter: 2018Q1

REPORT INFORMATION
  Report Type: Spontaneous
  Country: US (occurrence: US)
  Receive Date: 20180207
  Receipt Date: 20180207
  Transmission Date: 20180509
  Serious: Yes (Other)
  Sender: FDA-Public Use
  Company Number: US-PFIZER INC-2018051435

PATIENT

DRUGS (1)
  1. VIAGRA [Suspect]
     Active Substance: SILDENAFIL CITRATE
     Dosage: UNK
     Route: 048
     Dates: start: 20120110, end: 20150415

REACTIONS (2)
  - Metastatic malignant melanoma [Unknown]
  - Malignant melanoma [Unknown]

NARRATIVE: CASE EVENT DATE: 20141014
